FAERS Safety Report 13062196 (Version 1)
Quarter: 2016Q4

REPORT INFORMATION
  Report Type: Report from Study
  Country: US (occurrence: US)
  Receive Date: 20161226
  Receipt Date: 20161226
  Transmission Date: 20170207
  Serious: No
  Sender: FDA-Public Use
  Company Number: US-009507513-1612USA013305

PATIENT
  Sex: Male

DRUGS (1)
  1. EMEND [Suspect]
     Active Substance: APREPITANT
     Dosage: 150 MG, UNK
     Route: 042

REACTIONS (2)
  - Hospice care [Unknown]
  - Adverse event [Unknown]

NARRATIVE: CASE EVENT DATE: 2016
